FAERS Safety Report 20959663 (Version 8)
Quarter: 2024Q3

REPORT INFORMATION
  Report Type: Report from Study
  Country: US (occurrence: US)
  Receive Date: 20220614
  Receipt Date: 20240911
  Transmission Date: 20241017
  Serious: Yes (Hospitalization, Other)
  Sender: TAKEDA
  Company Number: US-SHIRE-US201925005AA

PATIENT
  Sex: Female

DRUGS (2)
  1. HUMAN IMMUNOGLOBULIN G [Suspect]
     Active Substance: HUMAN IMMUNOGLOBULIN G
     Indication: Immunodeficiency common variable
     Dosage: 10 GRAM
     Route: 065
  2. HUMAN IMMUNOGLOBULIN G [Suspect]
     Active Substance: HUMAN IMMUNOGLOBULIN G
     Indication: Primary immunodeficiency syndrome
     Dosage: 10 GRAM, 1/WEEK
     Route: 058

REACTIONS (19)
  - COVID-19 pneumonia [Recovering/Resolving]
  - Pulmonary fibrosis [Unknown]
  - Pneumonia [Recovering/Resolving]
  - Respiratory failure [Recovered/Resolved]
  - Septic shock [Recovered/Resolved]
  - Blood pressure decreased [Recovered/Resolved]
  - Hypervolaemia [Recovered/Resolved]
  - COVID-19 [Unknown]
  - Cardiac failure congestive [Recovered/Resolved]
  - Headache [Unknown]
  - Nerve compression [Unknown]
  - Herpes zoster [Recovered/Resolved]
  - Sleep apnoea syndrome [Unknown]
  - Asthma [Unknown]
  - Feeling abnormal [Unknown]
  - Malaise [Unknown]
  - Cough [Unknown]
  - Arthralgia [Unknown]
  - Dyspnoea [Unknown]

NARRATIVE: CASE EVENT DATE: 20180101
